FAERS Safety Report 20443459 (Version 1)
Quarter: 2022Q1

REPORT INFORMATION
  Report Type: Spontaneous
  Country: US (occurrence: US)
  Receive Date: 20220208
  Receipt Date: 20220208
  Transmission Date: 20220423
  Serious: Yes (Other)
  Sender: FDA-Public Use
  Company Number: US-ROCHE-3010460

PATIENT
  Sex: Male
  Weight: 90.800 kg

DRUGS (19)
  1. CLONAZEPAM [Suspect]
     Active Substance: CLONAZEPAM
     Indication: Anxiety
     Dosage: 1 MG, MAY TAKE UP TO 4 TIMES A DAY
     Route: 048
  2. RITUXAN [Suspect]
     Active Substance: RITUXIMAB
     Indication: Chronic lymphocytic leukaemia
     Dosage: UNK, 1/WEEK
     Route: 041
     Dates: start: 202112
  3. RITUXAN [Suspect]
     Active Substance: RITUXIMAB
     Indication: Chronic fatigue syndrome
     Dosage: UNK, 1/WEEK
     Route: 041
     Dates: start: 202112
  4. ADDERALL [Concomitant]
     Active Substance: AMPHETAMINE ASPARTATE\AMPHETAMINE SULFATE\DEXTROAMPHETAMINE SACCHARATE\DEXTROAMPHETAMINE SULFATE
     Indication: Sleep disorder
     Dosage: 30 MG, DAILY
     Route: 048
  5. VERAPAMIL [Concomitant]
     Active Substance: VERAPAMIL HYDROCHLORIDE
     Indication: Angiopathy
     Dosage: 80 MG, DAILY
     Route: 048
  6. SILDENAFIL [Concomitant]
     Active Substance: SILDENAFIL
     Indication: Pulmonary hypertension
     Dosage: 50 MG, TID
     Route: 048
  7. SILDENAFIL [Concomitant]
     Active Substance: SILDENAFIL
     Indication: Hypertension
     Dosage: 50 MG, TID
     Route: 048
  8. PREGABALIN [Concomitant]
     Active Substance: PREGABALIN
     Indication: Partial seizures
     Dosage: 200 MG, TID
     Route: 048
  9. PREGABALIN [Concomitant]
     Active Substance: PREGABALIN
     Indication: Pain
     Dosage: 200 MG, TID
     Route: 048
  10. HYDROCODONE [Concomitant]
     Active Substance: HYDROCODONE
     Indication: Pain
     Dosage: 5/325 MG
     Route: 048
  11. HYDROCODONE [Concomitant]
     Active Substance: HYDROCODONE
     Indication: Pain
     Dosage: 7.5/323 MG
     Route: 048
  12. BACLOFEN [Concomitant]
     Active Substance: BACLOFEN
     Indication: Pain
     Dosage: 10 MG, BID
     Route: 048
  13. BISOPROLOL FUMARATE [Concomitant]
     Active Substance: BISOPROLOL FUMARATE
     Indication: Hypertension
     Dosage: 5 MG, DAILY
     Route: 048
  14. CELEBREX [Concomitant]
     Active Substance: CELECOXIB
     Indication: Inflammation
     Dosage: 100 MG, BID
     Route: 048
  15. CLONIDINE [Concomitant]
     Active Substance: CLONIDINE
     Indication: Hypertension
     Dosage: 0.2 MG
     Route: 048
  16. LUNESTA [Concomitant]
     Active Substance: ESZOPICLONE
     Indication: Sleep disorder
     Dosage: 3 MG, DAILY
     Route: 048
  17. TESTOSTERONE [Concomitant]
     Active Substance: TESTOSTERONE
     Dosage: 0.5 ML, EVERY 10 DAYS
     Route: 030
  18. PILOCARPINE [Concomitant]
     Active Substance: PILOCARPINE
     Indication: Dry mouth
     Dosage: 5 MG, BID
     Route: 048
  19. PILOCARPINE [Concomitant]
     Active Substance: PILOCARPINE
     Indication: Dry eye
     Dosage: 5 MG, BID
     Route: 048

REACTIONS (9)
  - Leukaemia [Recovering/Resolving]
  - Sjogren^s syndrome [Not Recovered/Not Resolved]
  - Fatigue [Recovered/Resolved]
  - Dyspnoea [Recovered/Resolved]
  - Infection [Recovered/Resolved]
  - Hypertension [Not Recovered/Not Resolved]
  - Pain [Recovered/Resolved]
  - Raynaud^s phenomenon [Not Recovered/Not Resolved]
  - Incorrect product administration duration [Unknown]

NARRATIVE: CASE EVENT DATE: 20170101
